FAERS Safety Report 13113723 (Version 1)
Quarter: 2017Q1

REPORT INFORMATION
  Report Type: Spontaneous
  Country: JP (occurrence: JP)
  Receive Date: 20170113
  Receipt Date: 20170113
  Transmission Date: 20170428
  Serious: Yes (Hospitalization)
  Sender: FDA-Public Use
  Company Number: JP-JNJFOC-20170111262

PATIENT
  Age: 76 Year
  Sex: Male
  Weight: 74 kg

DRUGS (5)
  1. PARIET [Concomitant]
     Active Substance: RABEPRAZOLE SODIUM
     Dosage: STARTED BEFORE ADMINISTRATION OF CANAGLIFLOZIN
     Route: 048
  2. BAYASPIRIN [Concomitant]
     Active Substance: ASPIRIN
     Dosage: STARTED BEFORE 2009
     Route: 048
  3. CANAGLU [Suspect]
     Active Substance: CANAGLIFLOZIN
     Indication: TYPE 2 DIABETES MELLITUS
     Route: 048
     Dates: start: 20151225
  4. LIVALO [Concomitant]
     Active Substance: PITAVASTATIN CALCIUM
     Dosage: STARTED BEFORE ADMINISTRATION OF CANAGLIFLOZIN
     Route: 048
  5. MICARDIS [Concomitant]
     Active Substance: TELMISARTAN
     Dosage: STARTED BEFORE ADMINISTRATION OF CANAGLIFLOZIN
     Route: 048

REACTIONS (1)
  - Spinal laminectomy [Recovering/Resolving]

NARRATIVE: CASE EVENT DATE: 20160408
